FAERS Safety Report 24170609 (Version 1)
Quarter: 2024Q3

REPORT INFORMATION
  Report Type: Spontaneous
  Country: US (occurrence: None)
  Receive Date: 20240801
  Receipt Date: 20240801
  Transmission Date: 20241017
  Serious: Yes (Hospitalization)
  Sender: Public
  Company Number: None

PATIENT
  Age: 71 Year
  Sex: Female
  Weight: 69 kg

DRUGS (1)
  1. MAVYRET [Suspect]
     Active Substance: GLECAPREVIR\PIBRENTASVIR
     Indication: Hepatitis C
     Dates: start: 20240712

REACTIONS (4)
  - Blood pressure systolic increased [None]
  - Abdominal pain [None]
  - Nausea [None]
  - Chills [None]

NARRATIVE: CASE EVENT DATE: 20240724
